FAERS Safety Report 24580982 (Version 7)
Quarter: 2025Q1

REPORT INFORMATION
  Report Type: Spontaneous
  Country: US (occurrence: US)
  Receive Date: 20241105
  Receipt Date: 20250130
  Transmission Date: 20250409
  Serious: No
  Sender: PFIZER
  Company Number: US-PFIZER INC-202400280789

PATIENT
  Age: 55 Year
  Sex: Female
  Weight: 53.5 kg

DRUGS (2)
  1. TIVDAK [Suspect]
     Active Substance: TISOTUMAB VEDOTIN-TFTV
     Indication: Cervix carcinoma
     Dosage: 107 MG, EVERY 3 WEEKS
  2. TIVDAK [Suspect]
     Active Substance: TISOTUMAB VEDOTIN-TFTV
     Dosage: 105 MG, EVERY 3 WEEKS (EVERY 21 DAYS)
     Route: 042
     Dates: start: 20241118

REACTIONS (2)
  - Off label use [Unknown]
  - Product use issue [Unknown]
